FAERS Safety Report 16397995 (Version 1)
Quarter: 2019Q2

REPORT INFORMATION
  Report Type: Spontaneous
  Country: US (occurrence: US)
  Receive Date: 20190606
  Receipt Date: 20190606
  Transmission Date: 20190711
  Serious: No
  Sender: FDA-Public Use
  Company Number: US-JNJFOC-20190517182

PATIENT
  Age: 59 Year
  Sex: Female

DRUGS (3)
  1. TYLENOL [Suspect]
     Active Substance: ACETAMINOPHEN
     Indication: CHEST PAIN
     Dosage: THE OTHER DAY
     Route: 048
     Dates: start: 20190511
  2. TYLENOL [Suspect]
     Active Substance: ACETAMINOPHEN
     Route: 048
  3. GINGER. [Concomitant]
     Active Substance: GINGER
     Indication: CHEST PAIN
     Route: 065

REACTIONS (3)
  - Dyspepsia [Not Recovered/Not Resolved]
  - Gastrooesophageal reflux disease [Not Recovered/Not Resolved]
  - Drug ineffective [Unknown]
